FAERS Safety Report 7269296-5 (Version None)
Quarter: 2011Q1

REPORT INFORMATION
  Report Type: 
  Country: None (occurrence: None)
  Receive Date: 20110124
  Receipt Date: 20110118
  Transmission Date: 20110831
  Serious: Yes (Hospitalization)
  Sender: FDA-Public Use
  Company Number: WAES 1009DEU00090

PATIENT
  Age: 55 Year
  Sex: Male

DRUGS (28)
  1. RITONAVIR [Suspect]
     Indication: HIV INFECTION
     Dosage: 200 MG
     Dates: start: 20040225, end: 20061022
  2. RITONAVIR [Suspect]
     Indication: HIV INFECTION
     Dosage: 400 MG
     Dates: start: 20060225
  3. EZETIMIBE [Concomitant]
  4. ASPIRIN [Concomitant]
  5. FLUVASTATIN SODIUM [Concomitant]
  6. PENTAERYTHRITOL TETRANITRATE [Concomitant]
  7. EFAVIRENZ [Suspect]
     Indication: HIV INFECTION
     Dosage: 600 MG
     Dates: start: 20061023
  8. CLOPIDOGREL BISULFATE [Concomitant]
  9. NITROGLYCERIN [Concomitant]
  10. TAB MK-0518 [Suspect]
     Indication: HIV INFECTION
     Dosage: 400 MG/BID, PO
     Route: 048
     Dates: start: 20061023
  11. ATAZANAVIR SULFATE [Suspect]
     Indication: HIV INFECTION
     Dosage: 300 MG
     Dates: start: 20060609, end: 20061022
  12. DIDANOSINE [Suspect]
     Indication: HIV INFECTION
     Dosage: 250 MG
     Dates: start: 20061023
  13. LAMIVUDINE [Suspect]
     Indication: HIV INFECTION
     Dosage: 300 MG
     Dates: start: 20081118
  14. METOPROLOL SUCCINATE [Concomitant]
  15. TAMSULOSIN HYDROCHLORIDE [Concomitant]
  16. ENFUVIRTIDE [Suspect]
     Indication: HIV INFECTION
     Dosage: 180 MG
     Dates: start: 20060609, end: 20060620
  17. IBUPROFEN [Concomitant]
  18. LEVOTHYROXINE SODIUM [Concomitant]
  19. LOPERAMIDE HCL [Concomitant]
  20. TRIMIPRAMINE MALEATE [Concomitant]
  21. SAQUINAVIR [Suspect]
     Indication: HIV INFECTION
     Dosage: 2000 MG
     Dates: start: 20060609, end: 20061022
  22. OMEGA-3 MARINE TRIGLYCERIDES [Concomitant]
  23. PRAVASTATIN [Concomitant]
  24. TAB BLINDED THERAPY [Suspect]
     Indication: HIV INFECTION
     Dosage: PO
     Route: 048
     Dates: start: 20060609, end: 20061022
  25. TAB EMTRICITABINE (+) TENOFOVIR DISOPROXIL FUMA [Suspect]
     Indication: HIV INFECTION
     Dosage: 1 TAB/DAILY PO
     Route: 048
     Dates: start: 20060609, end: 20081116
  26. TIPRANAVIR [Suspect]
     Indication: HIV INFECTION
     Dosage: 1000 MG
     Dates: start: 20061023
  27. RAMIPRIL [Concomitant]
  28. ZOLPIDEM TARTRATE [Concomitant]

REACTIONS (11)
  - APHASIA [None]
  - MUSCLE SPASMS [None]
  - DISORIENTATION [None]
  - CEREBRAL ATROPHY [None]
  - PARKINSONISM [None]
  - MOVEMENT DISORDER [None]
  - ANGINA UNSTABLE [None]
  - ACUTE MYOCARDIAL INFARCTION [None]
  - NEURODEGENERATIVE DISORDER [None]
  - MOTOR DYSFUNCTION [None]
  - APRAXIA [None]
